FAERS Safety Report 10832109 (Version 3)
Quarter: 2015Q1

REPORT INFORMATION
  Report Type: Spontaneous
  Country: IT (occurrence: IT)
  Receive Date: 20150219
  Receipt Date: 20150303
  Transmission Date: 20150721
  Serious: Yes (Hospitalization)
  Sender: FDA-Public Use
  Company Number: IT-ACTAVIS-2015-02509

PATIENT
  Age: 44 Year
  Sex: Male

DRUGS (2)
  1. AMOXICILLIN AND CLAVULANATE POTASSIUM [Suspect]
     Active Substance: AMOXICILLIN\CLAVULANATE POTASSIUM
     Indication: PHARYNGITIS
     Dosage: 2 G, DAILY
     Route: 048
     Dates: start: 20150103, end: 20150110
  2. IBUPROFEN (UNKNOWN) [Suspect]
     Active Substance: IBUPROFEN
     Indication: PHARYNGITIS
     Dosage: 1200 MG, DAILY
     Route: 048
     Dates: start: 20150103, end: 20150110

REACTIONS (2)
  - Cholestasis [Unknown]
  - Myalgia [Unknown]

NARRATIVE: CASE EVENT DATE: 20150110
